FAERS Safety Report 4863842-4 (Version None)
Quarter: 2005Q4

REPORT INFORMATION
  Report Type: 
  Country: None (occurrence: None)
  Receive Date: 20051222
  Receipt Date: 20051010
  Transmission Date: 20060501
  Serious: No
  Sender: FDA-Public Use
  Company Number: US-GLAXOSMITHKLINE-A0577692A

PATIENT
  Sex: Male

DRUGS (3)
  1. FLONASE [Suspect]
     Dosage: 1SPR PER DAY
     Route: 045
  2. INSULIN [Concomitant]
  3. BLOOD PRESSURE MEDICATION [Concomitant]

REACTIONS (1)
  - PHARYNGOLARYNGEAL PAIN [None]
